FAERS Safety Report 25276513 (Version 3)
Quarter: 2025Q3

REPORT INFORMATION
  Report Type: Report from Study
  Country: EU (occurrence: EU)
  Receive Date: 20250507
  Receipt Date: 20250809
  Transmission Date: 20251020
  Serious: Yes (Other)
  Sender: ALEXION PHARMACEUTICALS
  Company Number: EU-ASTRAZENECA-202503GLO018169DE

PATIENT
  Age: 65 Year
  Sex: Male
  Weight: 95 kg

DRUGS (11)
  1. DURVALUMAB [Suspect]
     Active Substance: DURVALUMAB
     Indication: Hepatocellular carcinoma
     Dates: start: 20250214, end: 20250214
  2. DURVALUMAB [Suspect]
     Active Substance: DURVALUMAB
     Dates: start: 20250307, end: 20250307
  3. DURVALUMAB [Suspect]
     Active Substance: DURVALUMAB
     Dates: start: 20250430, end: 20250430
  4. CISPLATIN [Suspect]
     Active Substance: CISPLATIN
     Indication: Hepatobiliary cancer
     Dates: start: 20250213, end: 20250213
  5. CISPLATIN [Suspect]
     Active Substance: CISPLATIN
     Dates: start: 20250220, end: 20250220
  6. CISPLATIN [Suspect]
     Active Substance: CISPLATIN
     Dates: start: 20250306, end: 20250306
  7. CISPLATIN [Suspect]
     Active Substance: CISPLATIN
     Dates: start: 20250313, end: 20250313
  8. GEMCITABINE [Suspect]
     Active Substance: GEMCITABINE
     Indication: Hepatobiliary cancer
     Dates: start: 20250213, end: 20250213
  9. GEMCITABINE [Suspect]
     Active Substance: GEMCITABINE
     Dates: start: 20250220, end: 20250220
  10. GEMCITABINE [Suspect]
     Active Substance: GEMCITABINE
     Dates: start: 20250306, end: 20250306
  11. GEMCITABINE [Suspect]
     Active Substance: GEMCITABINE
     Dates: start: 20250313, end: 20250313

REACTIONS (4)
  - Pancytopenia [Not Recovered/Not Resolved]
  - Neuropathy peripheral [Recovered/Resolved]
  - Fatigue [Recovered/Resolved]
  - Oedema [Recovered/Resolved]

NARRATIVE: CASE EVENT DATE: 20250320
